FAERS Safety Report 5429813-4 (Version None)
Quarter: 2007Q3

REPORT INFORMATION
  Report Type: 
  Country: None (occurrence: None)
  Receive Date: 20070829
  Receipt Date: 20070820
  Transmission Date: 20080115
  Serious: Yes (Hospitalization, Other)
  Sender: FDA-Public Use
  Company Number: US-PFIZER INC-2007068913

PATIENT
  Sex: Female
  Weight: 90.7 kg

DRUGS (1)
  1. BEXTRA [Suspect]

REACTIONS (2)
  - ABSCESS [None]
  - HEPATOCELLULAR DAMAGE [None]
